FAERS Safety Report 5901691-6 (Version None)
Quarter: 2008Q3

REPORT INFORMATION
  Report Type: 
  Country: None (occurrence: None)
  Receive Date: 20080929
  Receipt Date: 20080917
  Transmission Date: 20090109
  Serious: Yes (Other)
  Sender: FDA-Public Use
  Company Number: A0749496A

PATIENT
  Age: 29 Year
  Sex: Female

DRUGS (2)
  1. COMBIVIR [Suspect]
     Indication: VIRAL INFECTION
     Dosage: 2TAB PER DAY
     Route: 048
     Dates: start: 20080630, end: 20080915
  2. VIRACEPT [Concomitant]
     Indication: VIRAL INFECTION
     Dosage: 2500MG PER DAY
     Route: 048
     Dates: start: 20080630, end: 20080915

REACTIONS (3)
  - DRUG EXPOSURE DURING PREGNANCY [None]
  - PRE-ECLAMPSIA [None]
  - STILLBIRTH [None]
